FAERS Safety Report 21113586 (Version 2)
Quarter: 2022Q3

REPORT INFORMATION
  Report Type: Spontaneous
  Country: US (occurrence: None)
  Receive Date: 20220721
  Receipt Date: 20220906
  Transmission Date: 20221027
  Serious: Yes (Other)
  Sender: FDA-Public Use
  Company Number: 2022A255531

PATIENT
  Age: 27000 Day
  Sex: Female
  Weight: 65.8 kg

DRUGS (2)
  1. EVUSHELD [Suspect]
     Active Substance: CILGAVIMAB\TIXAGEVIMAB
     Indication: Allergy prophylaxis
     Dosage: 150 MG OF TIXAGEVIMAB AND 150 MG OF CILGAVIMAB
     Route: 030
     Dates: start: 20220112
  2. EVUSHELD [Suspect]
     Active Substance: CILGAVIMAB\TIXAGEVIMAB
     Indication: Prophylaxis
     Dosage: 150 MG OF TIXAGEVIMAB AND 150 MG OF CILGAVIMAB
     Route: 030
     Dates: start: 20220315

REACTIONS (7)
  - Respiratory distress [Unknown]
  - Atelectasis [Unknown]
  - Dyspnoea [Unknown]
  - Body height decreased [Unknown]
  - Fatigue [Unknown]
  - Gait inability [Unknown]
  - Product use issue [Unknown]

NARRATIVE: CASE EVENT DATE: 20220315
